FAERS Safety Report 21926476 (Version 2)
Quarter: 2023Q1

REPORT INFORMATION
  Report Type: Spontaneous
  Country: FR (occurrence: FR)
  Receive Date: 20230130
  Receipt Date: 20230209
  Transmission Date: 20230418
  Serious: Yes (Hospitalization)
  Sender: FDA-Public Use
  Company Number: None

PATIENT
  Age: 50 Year
  Sex: Male
  Weight: 70 kg

DRUGS (4)
  1. AMOXICILLIN [Suspect]
     Active Substance: AMOXICILLIN
     Indication: Pharyngitis
     Dosage: 3 GRAM, QD
     Route: 048
     Dates: start: 20221031, end: 20221105
  2. PREDNISONE [Suspect]
     Active Substance: PREDNISONE
     Indication: Pharyngitis
     Dosage: 80 MILLIGRAM, 1 TOTAL
     Route: 048
     Dates: start: 20221031, end: 20221104
  3. CHLORHEXIDINE GLUCONATE\TETRACAINE HYDROCHLORIDE [Suspect]
     Active Substance: CHLORHEXIDINE GLUCONATE\TETRACAINE HYDROCHLORIDE
     Indication: Pharyngitis
     Dosage: 6 DOSAGE FORM, QD
     Route: 002
     Dates: start: 20221031, end: 20221106
  4. ACETAMINOPHEN [Concomitant]
     Active Substance: ACETAMINOPHEN
     Dosage: 4 GRAM, QD
     Route: 048
     Dates: start: 20221031, end: 20221105

REACTIONS (4)
  - Face oedema [Recovered/Resolved]
  - Rash maculo-papular [Recovered/Resolved]
  - Alanine aminotransferase increased [Recovered/Resolved]
  - Diarrhoea [Unknown]

NARRATIVE: CASE EVENT DATE: 20221106
